FAERS Safety Report 20417727 (Version 1)
Quarter: 2022Q1

REPORT INFORMATION
  Report Type: Other
  Country: ER (occurrence: None)
  Receive Date: 20220202
  Receipt Date: 20220202
  Transmission Date: 20220423
  Serious: Yes (Life-Threatening, Hospitalization)
  Sender: FDA-Public Use
  Company Number: ER-DEXPHARM-20220117

PATIENT
  Age: 25 Year
  Sex: Male

DRUGS (11)
  1. DICLOFENAC [Suspect]
     Active Substance: DICLOFENAC
  2. CEFTRIAXONE [Concomitant]
     Active Substance: CEFTRIAXONE
  3. MEPERIDINE [Concomitant]
     Active Substance: MEPERIDINE
  4. HYDROCORTISONE [Concomitant]
     Active Substance: HYDROCORTISONE
  5. ACETAMINOPHEN [Concomitant]
     Active Substance: ACETAMINOPHEN
  6. CLOXACILLIN [Concomitant]
     Active Substance: CLOXACILLIN
  7. METRONIDAZOLE [Concomitant]
     Active Substance: METRONIDAZOLE
  8. FUROSEMIDE [Concomitant]
     Active Substance: FUROSEMIDE
  9. FLUCLOXACILLIN [Concomitant]
     Active Substance: FLUCLOXACILLIN
  10. ALLOPURINOL [Concomitant]
     Active Substance: ALLOPURINOL
  11. SODIUM BICARBONATE [Concomitant]
     Active Substance: SODIUM BICARBONATE

REACTIONS (2)
  - Rhabdomyolysis [Recovered/Resolved]
  - Acute kidney injury [Recovered/Resolved]
